FAERS Safety Report 8283303-2 (Version None)
Quarter: 2012Q2

REPORT INFORMATION
  Report Type: 
  Country: None (occurrence: None)
  Receive Date: 20120413
  Receipt Date: 20120403
  Transmission Date: 20120825
  Serious: Yes (Hospitalization, Other)
  Sender: FDA-Public Use
  Company Number: US-JNJFOC-20120402872

PATIENT
  Age: 53 Year
  Sex: Male

DRUGS (4)
  1. GLUCOCORTICOID [Suspect]
     Route: 048
  2. INFLIXIMAB, RECOMBINANT [Suspect]
     Indication: CROHN'S DISEASE
     Route: 042
  3. MESALAMINE [Suspect]
     Indication: CROHN'S DISEASE
     Route: 048
  4. GLUCOCORTICOID [Suspect]
     Indication: CROHN'S DISEASE
     Route: 054

REACTIONS (3)
  - BACTERAEMIA [None]
  - LISTERIOSIS [None]
  - GASTROENTERITIS [None]
